FAERS Safety Report 7364794-8 (Version None)
Quarter: 2011Q1

REPORT INFORMATION
  Report Type: 
  Country: None (occurrence: None)
  Receive Date: 20110321
  Receipt Date: 20110308
  Transmission Date: 20110831
  Serious: Yes (Hospitalization)
  Sender: FDA-Public Use
  Company Number: PHHY2011NL19561

PATIENT
  Sex: Female

DRUGS (3)
  1. ZOMETA [Suspect]
     Dosage: UNK
     Dates: start: 20110209
  2. ZOMETA [Suspect]
     Indication: BREAST CANCER METASTATIC
     Dosage: 4 MG/5 ML 1X PER 28 DAYS
     Dates: start: 20100527
  3. ZOMETA [Suspect]
     Dosage: UNK
     Dates: start: 20110112

REACTIONS (4)
  - PULMONARY OEDEMA [None]
  - DYSPNOEA [None]
  - URINARY TRACT INFECTION [None]
  - RESPIRATORY TRACT INFECTION [None]
